FAERS Safety Report 20065666 (Version 1)
Quarter: 2021Q4

REPORT INFORMATION
  Report Type: Report from Study
  Country: CN (occurrence: CN)
  Receive Date: 20211113
  Receipt Date: 20211113
  Transmission Date: 20220303
  Serious: Yes (Hospitalization)
  Sender: FDA-Public Use
  Company Number: CN-NOVARTISPH-NVSC2021CN251290

PATIENT
  Age: 52 Year
  Sex: Female

DRUGS (7)
  1. TYKERB [Suspect]
     Active Substance: LAPATINIB DITOSYLATE
     Indication: HER2 positive breast cancer
     Dosage: 1250 MG, QD (EACH 21-DAY CYCLE)
     Route: 048
     Dates: start: 20170824, end: 20171228
  2. CAPECITABINE [Suspect]
     Active Substance: CAPECITABINE
     Indication: HER2 positive breast cancer
     Dosage: 1000 MG/M2, BID (DAYS 1-14 OF EACH 21-DAY CYCLE)
     Route: 048
     Dates: start: 20170824, end: 20171225
  3. PERINDOPRIL ERBUMINE [Concomitant]
     Active Substance: PERINDOPRIL ERBUMINE
     Indication: Hypertension
     Dosage: UNK
     Route: 065
     Dates: start: 20170812
  4. BIFIDOBACTERIUM BIFIDUM [Concomitant]
     Active Substance: BIFIDOBACTERIUM BIFIDUM
     Indication: Product used for unknown indication
     Dosage: UNK
     Route: 065
     Dates: start: 20180101, end: 20180107
  5. MONTMORILLONITE [Concomitant]
     Active Substance: MONTMORILLONITE
     Indication: Diarrhoea
     Dosage: UNK
     Route: 065
     Dates: start: 20171227, end: 20180102
  6. BROMHEXINE HYDROCHLORIDE [Concomitant]
     Active Substance: BROMHEXINE HYDROCHLORIDE
     Indication: Influenza
     Dosage: UNK
     Route: 065
     Dates: start: 20171231, end: 20180107
  7. LEVOFLOXACIN HYDROCHLORIDE [Concomitant]
     Active Substance: LEVOFLOXACIN HYDROCHLORIDE
     Indication: Influenza
     Dosage: UNK
     Route: 065
     Dates: start: 20171231, end: 20180107

REACTIONS (1)
  - Gastroenteritis [Recovered/Resolved]

NARRATIVE: CASE EVENT DATE: 20171228
